FAERS Safety Report 9166144 (Version 2)
Quarter: 2013Q2

REPORT INFORMATION
  Report Type: Spontaneous
  Country: US (occurrence: US)
  Receive Date: 20130315
  Receipt Date: 20130517
  Transmission Date: 20140414
  Serious: Yes (Hospitalization, Other)
  Sender: FDA-Public Use
  Company Number: US-TEVA-390862USA

PATIENT
  Age: 52 Year
  Sex: Female

DRUGS (1)
  1. FLUCONAZOLE [Suspect]
     Indication: ORAL CANDIDIASIS
     Dosage: 10 MILLIGRAM DAILY;
     Route: 048
     Dates: start: 20121220, end: 20121227

REACTIONS (3)
  - Stevens-Johnson syndrome [Recovered/Resolved with Sequelae]
  - Urinary tract infection [Unknown]
  - Photosensitivity reaction [Not Recovered/Not Resolved]
